FAERS Safety Report 10977662 (Version 1)
Quarter: 2015Q1

REPORT INFORMATION
  Report Type: Spontaneous
  Country: US (occurrence: None)
  Receive Date: 20150226
  Receipt Date: 20150226
  Transmission Date: 20150721
  Serious: No
  Sender: FDA-Public Use
  Company Number: TPA2010A00436

PATIENT
  Age: 52 Year
  Sex: Male
  Weight: 83.92 kg

DRUGS (5)
  1. ASPIRIN (ACETYLSALIC ACID [Concomitant]
  2. VYTORIN (SIMVASTATIN EZETIMIBE) [Concomitant]
  3. ULORIC [Suspect]
     Active Substance: FEBUXOSTAT
     Indication: GOUT
     Route: 048
     Dates: start: 20091209, end: 20091210
  4. HYZAIR (ALL OTHER THERAPEUTIC PRODUCTS) [Concomitant]
  5. INDOCIN (INDOMETACIN) [Concomitant]

REACTIONS (1)
  - Lethargy [None]

NARRATIVE: CASE EVENT DATE: 20091209
